FAERS Safety Report 4844862-2 (Version None)
Quarter: 2005Q4

REPORT INFORMATION
  Report Type: 
  Country: None (occurrence: None)
  Receive Date: 20051128
  Receipt Date: 20051111
  Transmission Date: 20060501
  Serious: Yes (Hospitalization, Other)
  Sender: FDA-Public Use
  Company Number: USA050495944

PATIENT
  Age: 79 Year
  Sex: Female
  Weight: 46.7205 kg

DRUGS (5)
  1. FORTEO [Suspect]
     Indication: OSTEOPOROSIS
     Dosage: 20 UG DAILY (1/D)
     Dates: start: 20050315
  2. FORTEO [Concomitant]
  3. BENICAR [Concomitant]
  4. PREVACID [Concomitant]
  5. TRAMADDOL (TRAMADOL) [Concomitant]

REACTIONS (4)
  - APHASIA [None]
  - DYSARTHRIA [None]
  - INJECTION SITE PAIN [None]
  - PHARMACEUTICAL PRODUCT COMPLAINT [None]
